FAERS Safety Report 5748724-8 (Version None)
Quarter: 2008Q2

REPORT INFORMATION
  Report Type: 
  Country: None (occurrence: None)
  Receive Date: 20080521
  Receipt Date: 20080506
  Transmission Date: 20081010
  Serious: Yes (Other)
  Sender: FDA-Public Use
  Company Number: 19312

PATIENT
  Age: 16 Year
  Sex: Male

DRUGS (4)
  1. METHOTREXATE [Suspect]
     Dosage: 15 MG WEEKLY
  2. METHOTREXATE [Suspect]
     Dosage: 2.5 MG WEEKLY
  3. REMICADE [Suspect]
     Indication: CROHN'S DISEASE
  4. HYDROCORTISONE [Concomitant]

REACTIONS (2)
  - ANAPHYLACTIC REACTION [None]
  - PARAESTHESIA [None]
